FAERS Safety Report 23342658 (Version 2)
Quarter: 2024Q1

REPORT INFORMATION
  Report Type: Spontaneous
  Country: US (occurrence: US)
  Receive Date: 20231227
  Receipt Date: 20240205
  Transmission Date: 20240410
  Serious: Yes (Other)
  Sender: FDA-Public Use
  Company Number: US-AstraZeneca-CH-00533063A

PATIENT
  Age: 26 Year
  Sex: Female
  Weight: 66 kg

DRUGS (2)
  1. ULTOMIRIS [Suspect]
     Active Substance: RAVULIZUMAB-CWVZ
     Indication: Myasthenia gravis
     Dosage: 3000 MILLIGRAM, EVERY 8 WEEKS
     Route: 042
  2. IMMUNOGLOBULIN [Concomitant]
     Indication: Myasthenia gravis
     Dosage: 600 MILLIGRAM
     Route: 042

REACTIONS (2)
  - Myasthenia gravis [Recovering/Resolving]
  - Drug level below therapeutic [Recovering/Resolving]

NARRATIVE: CASE EVENT DATE: 20231201
